FAERS Safety Report 25240534 (Version 5)
Quarter: 2025Q3

REPORT INFORMATION
  Report Type: Report from Study
  Country: US (occurrence: US)
  Receive Date: 20250425
  Receipt Date: 20250822
  Transmission Date: 20251020
  Serious: Yes (Hospitalization)
  Sender: TRAVERE THERAPEUTICS
  Company Number: US-TRAVERE-2025TVT00479

PATIENT
  Age: 72 Year
  Sex: Male

DRUGS (32)
  1. FILSPARI [Suspect]
     Active Substance: SPARSENTAN
     Indication: IgA nephropathy
     Route: 048
     Dates: start: 20250102, end: 202504
  2. AMLODIPINE [Concomitant]
     Active Substance: AMLODIPINE BESYLATE
  3. ASCORBIC ACID [Concomitant]
     Active Substance: ASCORBIC ACID
  4. ASPIRIN [Concomitant]
     Active Substance: ASPIRIN
  5. ATORVASTATIN [Concomitant]
     Active Substance: ATORVASTATIN
  6. ATOVAQUONE\PROGUANIL HYDROCHLORIDE [Concomitant]
     Active Substance: ATOVAQUONE\PROGUANIL HYDROCHLORIDE
  7. BIOTIN [Concomitant]
     Active Substance: BIOTIN
  8. OSCAL [Concomitant]
     Active Substance: CALCIUM CARBONATE
  9. CALCIUM CARBONATE [Concomitant]
     Active Substance: CALCIUM CARBONATE
  10. CHOLECALCIFEROL [Concomitant]
     Active Substance: CHOLECALCIFEROL
  11. CLOPIDOGREL [Concomitant]
     Active Substance: CLOPIDOGREL BISULFATE
  12. EZETIMIBE [Concomitant]
     Active Substance: EZETIMIBE
  13. FAMOTIDINE [Concomitant]
     Active Substance: FAMOTIDINE
  14. FIASP [Concomitant]
     Active Substance: INSULIN ASPART
  15. FLUCONAZOLE [Concomitant]
     Active Substance: FLUCONAZOLE
  16. FOLIC ACID [Concomitant]
     Active Substance: FOLIC ACID
  17. LAGEVRIO [Concomitant]
     Active Substance: MOLNUPIRAVIR
  18. LANTUS [Concomitant]
     Active Substance: INSULIN GLARGINE
  19. LEVOTHYROXINE [Concomitant]
     Active Substance: LEVOTHYROXINE
  20. METOPROLOL TARTRATE [Concomitant]
     Active Substance: METOPROLOL TARTRATE
  21. METOPROLOL [Concomitant]
     Active Substance: METOPROLOL
  22. multivitamins capsule [Concomitant]
  23. MYCOPHENOLATE MOFETIL [Concomitant]
     Active Substance: MYCOPHENOLATE MOFETIL
  24. NITROGLYCERIN [Concomitant]
     Active Substance: NITROGLYCERIN
  25. OZEMPIC [Concomitant]
     Active Substance: SEMAGLUTIDE
  26. PANTOPRAZOLE [Concomitant]
     Active Substance: PANTOPRAZOLE
  27. RIVAROXABAN [Concomitant]
     Active Substance: RIVAROXABAN
  28. SELENIUM [Concomitant]
     Active Substance: SELENIUM
  29. TACROLIMUS [Concomitant]
     Active Substance: TACROLIMUS
  30. TAMSULOSIN [Concomitant]
     Active Substance: TAMSULOSIN
  31. VASCEPA [Concomitant]
     Active Substance: ICOSAPENT ETHYL
  32. VITAMIN E [Concomitant]
     Active Substance: .ALPHA.-TOCOPHEROL

REACTIONS (19)
  - Hypervolaemia [Unknown]
  - Hypertension [Unknown]
  - Dyspnoea [Unknown]
  - Acute kidney injury [Unknown]
  - Nausea [None]
  - Oedema [Unknown]
  - Drug ineffective [Unknown]
  - Cough [Unknown]
  - Blood creatinine increased [Unknown]
  - Asthenia [Unknown]
  - Fatigue [Unknown]
  - Decreased appetite [Unknown]
  - Chapped lips [Unknown]
  - Thirst [Unknown]
  - Renal function test abnormal [Unknown]
  - Liver function test abnormal [Unknown]
  - Haematology test abnormal [Unknown]
  - Blood glucose increased [Unknown]
  - Weight decreased [Unknown]

NARRATIVE: CASE EVENT DATE: 20250320
